FAERS Safety Report 6166649-3 (Version None)
Quarter: 2009Q2

REPORT INFORMATION
  Report Type: 
  Country: None (occurrence: None)
  Receive Date: 20090424
  Receipt Date: 20090416
  Transmission Date: 20091009
  Serious: Yes (Other)
  Sender: FDA-Public Use
  Company Number: AT-B.I. PHARMACEUTICALS,INC./RIDGEFIELD-2009-AP-00096AP

PATIENT
  Age: 92 Year
  Sex: Female

DRUGS (4)
  1. SPIRIVA [Suspect]
     Indication: CHRONIC OBSTRUCTIVE PULMONARY DISEASE
     Dosage: 1 X 1
     Route: 055
     Dates: start: 20090101
  2. MEPRIL [Concomitant]
     Indication: HYPERTONIA
     Dosage: 2 X 1
     Route: 048
     Dates: start: 20050301
  3. ASPIRIN [Concomitant]
     Indication: CEREBROVASCULAR ACCIDENT
     Dosage: 1 X 1
     Route: 048
     Dates: start: 20031201
  4. SYMBICORT [Concomitant]
     Indication: CHRONIC OBSTRUCTIVE PULMONARY DISEASE
     Dosage: STANDARD 2 X 2
     Route: 055
     Dates: start: 20090101

REACTIONS (1)
  - DELIRIUM [None]
